FAERS Safety Report 10579122 (Version 1)
Quarter: 2014Q4

REPORT INFORMATION
  Report Type: Spontaneous
  Country: JP (occurrence: JP)
  Receive Date: 20141112
  Receipt Date: 20141112
  Transmission Date: 20150529
  Serious: Yes (Other)
  Sender: FDA-Public Use
  Company Number: JP-SA-2014SA154757

PATIENT
  Age: 82 Year
  Sex: Male

DRUGS (4)
  1. CARDENALIN [Suspect]
     Active Substance: DOXAZOSIN MESYLATE
     Dosage: FORM: ORODISPERSABLE TABLET
     Route: 048
     Dates: start: 201311
  2. MYSLEE [Suspect]
     Active Substance: ZOLPIDEM TARTRATE
     Indication: INSOMNIA
     Route: 065
     Dates: start: 201311
  3. ROZEREM [Suspect]
     Active Substance: RAMELTEON
     Route: 065
     Dates: start: 201311
  4. YODEL [Suspect]
     Active Substance: SENNA LEAF
     Route: 065
     Dates: start: 201311

REACTIONS (1)
  - Pancytopenia [Unknown]

NARRATIVE: CASE EVENT DATE: 20141001
